FAERS Safety Report 8318155-5 (Version None)
Quarter: 2012Q2

REPORT INFORMATION
  Report Type: 
  Country: None (occurrence: None)
  Receive Date: 20120427
  Receipt Date: 20120418
  Transmission Date: 20120825
  Serious: Yes (Other)
  Sender: FDA-Public Use
  Company Number: CH-ROCHE-1061048

PATIENT
  Sex: Female

DRUGS (2)
  1. BENDAMUSTINE [Concomitant]
     Indication: WALDENSTROM'S MACROGLOBULINAEMIA
  2. MABTHERA [Suspect]
     Indication: WALDENSTROM'S MACROGLOBULINAEMIA
     Route: 042

REACTIONS (3)
  - HALLUCINATION, AUDITORY [None]
  - TINNITUS [None]
  - COGNITIVE DISORDER [None]
